FAERS Safety Report 4306818-8 (Version None)
Quarter: 2004Q1

REPORT INFORMATION
  Report Type: 
  Country: None (occurrence: None)
  Receive Date: 20040225
  Receipt Date: 20040205
  Transmission Date: 20041129
  Serious: Yes (Other)
  Sender: FDA-Public Use
  Company Number: USA040258566

PATIENT
  Age: 43 Year
  Sex: Female

DRUGS (4)
  1. FORTEO [Suspect]
     Dates: start: 20040204
  2. VERAPAMIL [Concomitant]
  3. BENADRYL [Concomitant]
  4. PREDNISONE [Concomitant]

REACTIONS (5)
  - BLOOD GLUCOSE INCREASED [None]
  - CARDIAC FLUTTER [None]
  - HEART RATE DECREASED [None]
  - HYPERSENSITIVITY [None]
  - INJURY [None]
